FAERS Safety Report 11182460 (Version 2)
Quarter: 2015Q2

REPORT INFORMATION
  Report Type: Spontaneous
  Country: MA (occurrence: MA)
  Receive Date: 20150611
  Receipt Date: 20150617
  Transmission Date: 20150821
  Serious: Yes (Death, Hospitalization, Other)
  Sender: FDA-Public Use
  Company Number: MA-GLAXOSMITHKLINE-MA2015GSK080736

PATIENT
  Age: 55 Year
  Sex: Male

DRUGS (1)
  1. VOTRIENT [Suspect]
     Active Substance: PAZOPANIB HYDROCHLORIDE
     Indication: SOFT TISSUE SARCOMA
     Dosage: 800 MG, UNK
     Route: 048
     Dates: end: 20150527

REACTIONS (4)
  - Death [Fatal]
  - Jaundice cholestatic [Unknown]
  - Condition aggravated [Unknown]
  - Sarcoma [Unknown]

NARRATIVE: CASE EVENT DATE: 20150605
